FAERS Safety Report 19222305 (Version 1)
Quarter: 2021Q2

REPORT INFORMATION
  Report Type: Other
  Country: A1 (occurrence: A1)
  Receive Date: 20210506
  Receipt Date: 20210506
  Transmission Date: 20210717
  Serious: Yes (Hospitalization, Other)
  Sender: FDA-Public Use
  Company Number: A1-NUVO PHARMACEUTICALS INC-2110262

PATIENT
  Age: 30 Year
  Sex: Female

DRUGS (4)
  1. NAPROXEN. [Suspect]
     Active Substance: NAPROXEN
     Indication: MIXED CONNECTIVE TISSUE DISEASE
     Route: 065
  2. NIFEDIPINE. [Suspect]
     Active Substance: NIFEDIPINE
     Route: 065
  3. AZATHIOPRINE. [Suspect]
     Active Substance: AZATHIOPRINE
     Route: 065
  4. PREDNISONE. [Suspect]
     Active Substance: PREDNISONE
     Route: 065

REACTIONS (2)
  - Acute kidney injury [Recovered/Resolved]
  - Scleroderma renal crisis [Recovered/Resolved]
